FAERS Safety Report 8216775-X (Version None)
Quarter: 2012Q1

REPORT INFORMATION
  Report Type: 
  Country: None (occurrence: None)
  Receive Date: 20120316
  Receipt Date: 20120307
  Transmission Date: 20120608
  Serious: Yes (Other)
  Sender: FDA-Public Use
  Company Number: US-ROCHE-793783

PATIENT
  Sex: Male
  Weight: 86.26 kg

DRUGS (2)
  1. ACCUTANE [Suspect]
     Indication: ACNE
     Route: 065
     Dates: start: 19991029, end: 20000111
  2. ACCUTANE [Suspect]
     Route: 065

REACTIONS (9)
  - DEPRESSION [None]
  - LIP DRY [None]
  - INFLAMMATORY BOWEL DISEASE [None]
  - BLOOD TRIGLYCERIDES INCREASED [None]
  - INTESTINAL POLYP [None]
  - DRY SKIN [None]
  - COLITIS ULCERATIVE [None]
  - DRY EYE [None]
  - BLOOD CHOLESTEROL INCREASED [None]
